FAERS Safety Report 23677403 (Version 1)
Quarter: 2024Q1

REPORT INFORMATION
  Report Type: Spontaneous
  Country: CN (occurrence: CN)
  Receive Date: 20240327
  Receipt Date: 20240327
  Transmission Date: 20240410
  Serious: Yes (Other)
  Sender: FDA-Public Use
  Company Number: None

PATIENT
  Age: 66 Year
  Sex: Male
  Weight: 83 kg

DRUGS (2)
  1. OPTIRAY [Suspect]
     Active Substance: IOVERSOL
     Indication: Computerised tomogram abdomen
     Route: 042
     Dates: start: 20231026, end: 20231026
  2. SALINE [Suspect]
     Active Substance: SODIUM CHLORIDE
     Indication: Computerised tomogram abdomen
     Route: 042
     Dates: start: 20231026, end: 20231026

REACTIONS (7)
  - Pruritus [Recovered/Resolved]
  - Pyrexia [Unknown]
  - Dizziness [Unknown]
  - Palpitations [Unknown]
  - Hyperhidrosis [Unknown]
  - Discomfort [Unknown]
  - Blood pressure immeasurable [Unknown]

NARRATIVE: CASE EVENT DATE: 20231026
